FAERS Safety Report 11651864 (Version 1)
Quarter: 2015Q4

REPORT INFORMATION
  Report Type: Spontaneous
  Country: US (occurrence: None)
  Receive Date: 20151021
  Receipt Date: 20151021
  Transmission Date: 20160304
  Serious: Yes (Hospitalization, Other)
  Sender: FDA-Public Use
  Company Number: None

PATIENT
  Age: 52 Year
  Sex: Female
  Weight: 104.33 kg

DRUGS (6)
  1. VENLAFAXINE HCL [Suspect]
     Active Substance: VENLAFAXINE HYDROCHLORIDE
     Indication: ANXIETY
     Dosage: BY MOUTH
     Route: 048
     Dates: start: 20150909, end: 20150909
  2. XANAX [Concomitant]
     Active Substance: ALPRAZOLAM
  3. VENLAFAXINE HCL [Suspect]
     Active Substance: VENLAFAXINE HYDROCHLORIDE
     Indication: POST-TRAUMATIC STRESS DISORDER
     Dosage: BY MOUTH
     Route: 048
     Dates: start: 20150909, end: 20150909
  4. VITAMIN D [Concomitant]
     Active Substance: CHOLECALCIFEROL
  5. VENLAFAXINE HCL [Suspect]
     Active Substance: VENLAFAXINE HYDROCHLORIDE
     Indication: DEPRESSION
     Dosage: BY MOUTH
     Route: 048
     Dates: start: 20150909, end: 20150909
  6. PRILOSEC [Concomitant]
     Active Substance: OMEPRAZOLE MAGNESIUM

REACTIONS (8)
  - Cerebrovascular accident [None]
  - Confusional state [None]
  - Blood pressure increased [None]
  - Palpitations [None]
  - Vomiting [None]
  - Dyspnoea [None]
  - Dysarthria [None]
  - Headache [None]

NARRATIVE: CASE EVENT DATE: 20150909
